FAERS Safety Report 4332471-3 (Version None)
Quarter: 2004Q2

REPORT INFORMATION
  Report Type: 
  Country: None (occurrence: None)
  Receive Date: 20040401
  Receipt Date: 20040323
  Transmission Date: 20050107
  Serious: Yes (Hospitalization)
  Sender: FDA-Public Use
  Company Number: HQWYE039423MAR04

PATIENT
  Age: 71 Year
  Sex: Male

DRUGS (1)
  1. ANCARON (AMIODARONE, TABLET) [Suspect]
     Indication: VENTRICULAR FIBRILLATION
     Dosage: 100 MG 2X PER 1 DAY; ORAL
     Route: 048
     Dates: start: 20030101, end: 20031222

REACTIONS (1)
  - INTERSTITIAL LUNG DISEASE [None]
